FAERS Safety Report 8588441-2 (Version None)
Quarter: 2012Q3

REPORT INFORMATION
  Report Type: 
  Country: None (occurrence: None)
  Receive Date: 20120813
  Receipt Date: 20120807
  Transmission Date: 20120928
  Serious: No
  Sender: FDA-Public Use
  Company Number: US-PFIZER INC-2012192435

PATIENT
  Age: 65 Year
  Sex: Female
  Weight: 76.7 kg

DRUGS (13)
  1. SYNTHROID [Concomitant]
     Dosage: 50 UG, 1X/DAY
  2. NITROSTAT [Concomitant]
     Dosage: UNK, AS NEEDED
  3. SPIRIVA [Concomitant]
     Dosage: UNK
  4. BACTRIM [Concomitant]
     Dosage: UNK, 1X/DAY
  5. ZOLOFT [Concomitant]
     Dosage: 50 MG, 1X/DAY
  6. ALBUTEROL [Concomitant]
     Dosage: UNK
  7. POTASSIUM [Concomitant]
     Dosage: 20 MEQ, 1X/DAY
  8. NORCO [Concomitant]
     Indication: PAIN
     Dosage: 10/325
  9. FAMOTIDINE [Concomitant]
     Indication: GASTROINTESTINAL DISORDER
     Dosage: 40 MG, UNK
  10. OGEN [Concomitant]
     Dosage: 0.75 MG, UNK
  11. MACROBID [Concomitant]
     Dosage: 100 MG, 1X/DAY
  12. DETROL LA [Suspect]
     Dosage: UNK, 1X/DAY
     Route: 048
     Dates: start: 20040101
  13. ATIVAN [Concomitant]
     Dosage: 0.5 MG, AS NEEDED

REACTIONS (1)
  - DRUG INEFFECTIVE [None]
